FAERS Safety Report 8583965-6 (Version None)
Quarter: 2012Q3

REPORT INFORMATION
  Report Type: 
  Country: None (occurrence: None)
  Receive Date: 20120810
  Receipt Date: 20120705
  Transmission Date: 20120928
  Serious: No
  Sender: FDA-Public Use
  Company Number: US-009507513-2012SP030970

PATIENT

DRUGS (10)
  1. REBETOL [Suspect]
  2. HYDROCHLOROT [Concomitant]
  3. VITAMIN D [Concomitant]
  4. BOCEPREVIR [Suspect]
     Indication: PRODUCT USED FOR UNKNOWN INDICATION
     Dosage: 800 MG, Q8H
     Route: 048
  5. ZETIA [Concomitant]
  6. KLOR-CON [Concomitant]
  7. AMLODIPINE BESYLATE AND BENAZEPRIL HYDROCHLORIDE [Concomitant]
  8. LANSOPRAZOLE [Concomitant]
  9. PEGASYS [Suspect]
  10. PROCRIT [Concomitant]

REACTIONS (4)
  - NAUSEA [None]
  - ANAEMIA [None]
  - BLOOD PRESSURE DECREASED [None]
  - DYSGEUSIA [None]
